FAERS Safety Report 9563743 (Version 1)
Quarter: 2013Q3

REPORT INFORMATION
  Report Type: Spontaneous
  Country: CM (occurrence: None)
  Receive Date: 20130926
  Receipt Date: 20130926
  Transmission Date: 20140515
  Serious: Yes (Death, Hospitalization)
  Sender: FDA-Public Use
  Company Number: 2013P1019420

PATIENT
  Age: 46 Year
  Sex: Male

DRUGS (2)
  1. ALBENDAZOLE [Suspect]
     Indication: FILARIASIS LYMPHATIC
     Dates: start: 20130724
  2. MECTIZAN [Suspect]
     Indication: FILARIASIS LYMPHATIC

REACTIONS (11)
  - Pyrexia [None]
  - Asthenia [None]
  - Arthralgia [None]
  - Abdominal pain upper [None]
  - Depressed level of consciousness [None]
  - Dyspnoea [None]
  - Tachycardia [None]
  - Headache [None]
  - Drug interaction [None]
  - Pain in extremity [None]
  - Poisoning [None]
